FAERS Safety Report 9853327 (Version 1)
Quarter: 2014Q1

REPORT INFORMATION
  Report Type: Report from Study
  Country: US (occurrence: US)
  Receive Date: 20140129
  Receipt Date: 20140129
  Transmission Date: 20141002
  Serious: Yes (Hospitalization, Other)
  Sender: FDA-Public Use
  Company Number: US-MYLANLABS-2014S1001496

PATIENT
  Sex: Male

DRUGS (1)
  1. AMNESTEEM CAPSULES [Suspect]
     Dates: start: 20130829, end: 20130927

REACTIONS (1)
  - Investigation [Not Recovered/Not Resolved]
